FAERS Safety Report 12582517 (Version 1)
Quarter: 2016Q3

REPORT INFORMATION
  Report Type: Spontaneous
  Country: US (occurrence: None)
  Receive Date: 20160721
  Receipt Date: 20160721
  Transmission Date: 20161109
  Serious: No
  Sender: FDA-Public Use
  Company Number: None

PATIENT
  Age: 54 Year
  Sex: Female

DRUGS (1)
  1. CAPECITABINE TAB 500MG [Suspect]
     Active Substance: CAPECITABINE
     Indication: BREAST CANCER FEMALE

REACTIONS (7)
  - Peripheral swelling [None]
  - Blister [None]
  - Hypoaesthesia [None]
  - Pain in extremity [None]
  - Dizziness [None]
  - Paranoia [None]
  - Herpes zoster [None]

NARRATIVE: CASE EVENT DATE: 20160720
